FAERS Safety Report 19140222 (Version 1)
Quarter: 2021Q2

REPORT INFORMATION
  Report Type: Report from Study
  Country: US (occurrence: US)
  Receive Date: 20210415
  Receipt Date: 20210415
  Transmission Date: 20210717
  Serious: Yes (Death, Hospitalization)
  Sender: FDA-Public Use
  Company Number: US-PFIZER INC-2021406638

PATIENT
  Age: 76 Year
  Sex: Male
  Weight: 79.5 kg

DRUGS (8)
  1. PROPOFOL. [Suspect]
     Active Substance: PROPOFOL
     Dosage: 50 MCG/KG/MIN
     Dates: start: 20210225, end: 20210319
  2. BLINDED THERAPY [Suspect]
     Active Substance: INVESTIGATIONAL PRODUCT
     Indication: COVID-19
     Dosage: UNK
     Route: 042
     Dates: start: 20210228, end: 20210228
  3. ALBUTEROL HFA [Concomitant]
     Active Substance: ALBUTEROL SULFATE
     Dosage: UNK
     Dates: start: 20210313, end: 20210319
  4. BLINDED THERAPY [Suspect]
     Active Substance: INVESTIGATIONAL PRODUCT
     Indication: ACUTE RESPIRATORY DISTRESS SYNDROME
     Dosage: UNK
     Route: 042
     Dates: start: 20210226, end: 20210228
  5. NOREPINEPHRINE [NOREPINEPHRINE HYDROCHLORIDE] [Concomitant]
     Dosage: UNK
     Dates: start: 20210225, end: 20210312
  6. KETAMINE [KETAMINE HYDROCHLORIDE] [Concomitant]
     Active Substance: KETAMINE HYDROCHLORIDE
     Dosage: UNK
     Dates: start: 20210302, end: 20210310
  7. SALBUTAMOL [Concomitant]
     Active Substance: ALBUTEROL
  8. FENTANYL. [Concomitant]
     Active Substance: FENTANYL
     Dosage: FENTANYL CITRATE
     Dates: start: 20210225, end: 20210308

REACTIONS (2)
  - Respiratory failure [Fatal]
  - Encephalopathy [Not Recovered/Not Resolved]

NARRATIVE: CASE EVENT DATE: 20210303
